FAERS Safety Report 4416623-X (Version None)
Quarter: 2004Q2

REPORT INFORMATION
  Report Type: 
  Country: None (occurrence: None)
  Receive Date: 20040630
  Receipt Date: 20040322
  Transmission Date: 20050107
  Serious: Yes (Other)
  Sender: FDA-Public Use
  Company Number: ENTC2004-0053

PATIENT
  Age: 88 Year
  Sex: Female
  Weight: 51.7 kg

DRUGS (1)
  1. STALEVO 100 [Suspect]
     Indication: PARKINSON'S DISEASE
     Dosage: 50 MG/12.5 MG/200 MG TWICE DAILY, ORAL
     Route: 048
     Dates: start: 20031201, end: 20040315

REACTIONS (4)
  - ANOREXIA [None]
  - NAUSEA [None]
  - VOMITING [None]
  - WEIGHT DECREASED [None]
